FAERS Safety Report 17279995 (Version 1)
Quarter: 2020Q1

REPORT INFORMATION
  Report Type: Spontaneous
  Country: US (occurrence: US)
  Receive Date: 20200117
  Receipt Date: 20200117
  Transmission Date: 20200409
  Serious: Yes (Life-Threatening, Hospitalization, Other)
  Sender: FDA-Public Use
  Company Number: US-BRISTOL-MYERS SQUIBB COMPANY-BMS-2019-126201

PATIENT
  Sex: Female

DRUGS (1)
  1. ELIQUIS [Suspect]
     Active Substance: APIXABAN
     Indication: CEREBROVASCULAR ACCIDENT PROPHYLAXIS
     Dosage: 5 MILLIGRAM, BID
     Route: 048

REACTIONS (11)
  - Cardiac failure congestive [Unknown]
  - Hyperkalaemia [Unknown]
  - Troponin increased [Unknown]
  - Agitation [Unknown]
  - Acute kidney injury [Unknown]
  - Hypotension [Unknown]
  - Shock [Unknown]
  - Senile dementia [Unknown]
  - Cor pulmonale [Unknown]
  - Lactic acidosis [Unknown]
  - Acute respiratory failure [Unknown]
